FAERS Safety Report 7137117-7 (Version None)
Quarter: 2010Q4

REPORT INFORMATION
  Report Type: 
  Country: None (occurrence: None)
  Receive Date: 20101206
  Receipt Date: 20071105
  Transmission Date: 20110411
  Serious: Yes (Death, Hospitalization)
  Sender: FDA-Public Use
  Company Number: US-ACTELION-A-US2006-12980

PATIENT

DRUGS (1)
  1. BOSENTAN TABLET 62.5 MG US [Suspect]
     Indication: PULMONARY ARTERIAL HYPERTENSION
     Dosage: 62.5 MG, BID
     Route: 048
     Dates: start: 20060724, end: 20060809

REACTIONS (6)
  - DEATH [None]
  - DIZZINESS [None]
  - FATIGUE [None]
  - NAUSEA [None]
  - OESOPHAGEAL CARCINOMA [None]
  - OESOPHAGEAL OPERATION [None]
